FAERS Safety Report 7362559-4 (Version None)
Quarter: 2011Q1

REPORT INFORMATION
  Report Type: 
  Country: None (occurrence: None)
  Receive Date: 20110320
  Receipt Date: 20110311
  Transmission Date: 20110831
  Serious: No
  Sender: FDA-Public Use
  Company Number: US-ROXANE LABORATORIES, INC.-2011-RO-00334RO

PATIENT
  Sex: Male

DRUGS (2)
  1. REGLAN [Suspect]
     Dates: start: 20000501, end: 20011201
  2. METOCLOPRAMIDE [Suspect]
     Dates: start: 20000501, end: 20011201

REACTIONS (6)
  - AKATHISIA [None]
  - EXTRAPYRAMIDAL DISORDER [None]
  - TREMOR [None]
  - TARDIVE DYSKINESIA [None]
  - DYSKINESIA [None]
  - DYSTONIA [None]
